FAERS Safety Report 16420057 (Version 1)
Quarter: 2019Q2

REPORT INFORMATION
  Report Type: Spontaneous
  Country: CZ (occurrence: CZ)
  Receive Date: 20190612
  Receipt Date: 20190612
  Transmission Date: 20190711
  Serious: Yes (Other)
  Sender: FDA-Public Use
  Company Number: CZ-PROVELL PHARMACEUTICALS-2068132

PATIENT
  Sex: Male

DRUGS (1)
  1. EUTHYROX [Suspect]
     Active Substance: LEVOTHYROXINE SODIUM
     Indication: HYPOTHYROIDISM

REACTIONS (8)
  - Dry throat [None]
  - Mood altered [None]
  - Paraesthesia [None]
  - Hyporeflexia [None]
  - Disturbance in attention [None]
  - Hypoacusis [None]
  - Mental impairment [None]
  - Dry mouth [None]
